FAERS Safety Report 16538192 (Version 2)
Quarter: 2019Q3

REPORT INFORMATION
  Report Type: Spontaneous
  Country: US (occurrence: US)
  Receive Date: 20190708
  Receipt Date: 20190814
  Transmission Date: 20191004
  Serious: No
  Sender: FDA-Public Use
  Company Number: US-SA-2019SA181963

PATIENT
  Age: 63 Year
  Sex: Female

DRUGS (21)
  1. INDOMETHACIN AGILA [Concomitant]
  2. METOPROLOL SUCCINATE. [Concomitant]
     Active Substance: METOPROLOL SUCCINATE
  3. TACROLIMUS. [Concomitant]
     Active Substance: TACROLIMUS
     Dosage: UNK UNK, BID
     Route: 061
  4. TIZANIDINE. [Concomitant]
     Active Substance: TIZANIDINE
  5. DICLOFENAC [Concomitant]
     Active Substance: DICLOFENAC
     Route: 061
  6. RESTASIS [Concomitant]
     Active Substance: CYCLOSPORINE
  7. GENTAMICIN. [Concomitant]
     Active Substance: GENTAMICIN
     Route: 061
  8. HYDROCODONE [Concomitant]
     Active Substance: HYDROCODONE
  9. ISOSORBIDE MONONITRATE. [Concomitant]
     Active Substance: ISOSORBIDE MONONITRATE
  10. MUPIROCIN. [Concomitant]
     Active Substance: MUPIROCIN
     Route: 061
  11. ATORVASTATIN [Concomitant]
     Active Substance: ATORVASTATIN
  12. MOMETASONE [Concomitant]
     Active Substance: MOMETASONE
     Dosage: UNK UNK, TID FOR UPTO 2 WEEKS AT A TIME.
     Route: 061
  13. FLUOROMETHOLONE. [Concomitant]
     Active Substance: FLUOROMETHOLONE
  14. MELOXICAM. [Concomitant]
     Active Substance: MELOXICAM
  15. AMLODIPINE [Concomitant]
     Active Substance: AMLODIPINE BESYLATE
  16. BUPRENORPHINE. [Concomitant]
     Active Substance: BUPRENORPHINE
     Dosage: 5 UG//HOUR WEEKLY
  17. DUPIXENT [Suspect]
     Active Substance: DUPILUMAB
     Indication: DERMATITIS ATOPIC
     Dosage: 300 MG, QOW
     Route: 058
     Dates: start: 20190508, end: 20190603
  18. CEPHALEXIN [CEFALEXIN] [Concomitant]
     Active Substance: CEPHALEXIN
  19. CLOPIDOGREL [Concomitant]
     Active Substance: CLOPIDOGREL BISULFATE
  20. FUROSEMIDE. [Concomitant]
     Active Substance: FUROSEMIDE
  21. POLYETHYLENE GLYCOL 3350. [Concomitant]
     Active Substance: POLYETHYLENE GLYCOL 3350

REACTIONS (9)
  - Injection site oedema [Unknown]
  - Injection site pain [Unknown]
  - Injection site erythema [Unknown]
  - Drug ineffective [Unknown]
  - Chills [Unknown]
  - Injection site irritation [Unknown]
  - Injection site induration [Unknown]
  - Pyrexia [Unknown]
  - Weight decreased [Unknown]
